FAERS Safety Report 7245594-6 (Version None)
Quarter: 2011Q1

REPORT INFORMATION
  Report Type: 
  Country: None (occurrence: None)
  Receive Date: 20110126
  Receipt Date: 20110119
  Transmission Date: 20110831
  Serious: Yes (Hospitalization, Disabling, Other)
  Sender: FDA-Public Use
  Company Number: GB-PFIZER INC-2011013858

PATIENT
  Age: 47 Year
  Sex: Female

DRUGS (1)
  1. TRANEXAMIC ACID [Suspect]
     Dosage: 1.5 G, 3X/DAY
     Route: 048

REACTIONS (2)
  - HEMIPARESIS [None]
  - CEREBROVASCULAR ACCIDENT [None]
